FAERS Safety Report 25087443 (Version 1)
Quarter: 2025Q1

REPORT INFORMATION
  Report Type: Spontaneous
  Country: US (occurrence: US)
  Receive Date: 20250318
  Receipt Date: 20250318
  Transmission Date: 20250409
  Serious: No
  Sender: BOEHRINGER INGELHEIM
  Company Number: US-Komodo Health-a23aa000006Lu0YAAS

PATIENT
  Sex: Female

DRUGS (1)
  1. SYNJARDY [Suspect]
     Active Substance: EMPAGLIFLOZIN\METFORMIN HYDROCHLORIDE
     Indication: Glycosylated haemoglobin abnormal

REACTIONS (3)
  - Pruritus genital [Not Recovered/Not Resolved]
  - Genital rash [Not Recovered/Not Resolved]
  - Genital swelling [Not Recovered/Not Resolved]

NARRATIVE: CASE EVENT DATE: 20250201
